FAERS Safety Report 7723931-3 (Version None)
Quarter: 2011Q3

REPORT INFORMATION
  Report Type: 
  Country: None (occurrence: None)
  Receive Date: 20110901
  Receipt Date: 20110822
  Transmission Date: 20111222
  Serious: Yes (Hospitalization, Other)
  Sender: FDA-Public Use
  Company Number: US-ELI_LILLY_AND_COMPANY-US201108007033

PATIENT
  Age: 51 Year
  Sex: Male

DRUGS (5)
  1. FORTEO [Suspect]
     Indication: OSTEOPOROSIS
     Dosage: 20 UG, QD
     Dates: start: 20100901
  2. URSODIOL [Concomitant]
  3. CLOMIPHENE CITRATE [Concomitant]
  4. HUMIRA [Concomitant]
  5. HYPNOTICS AND SEDATIVES [Concomitant]

REACTIONS (7)
  - THROMBOSIS [None]
  - DRUG DOSE OMISSION [None]
  - PORTAL VEIN THROMBOSIS [None]
  - BLOOD COUNT ABNORMAL [None]
  - HAEMORRHAGE [None]
  - EMERGENCY CARE EXAMINATION [None]
  - PLATELET COUNT DECREASED [None]
